FAERS Safety Report 4905092-9 (Version None)
Quarter: 2006Q1

REPORT INFORMATION
  Report Type: 
  Country: None (occurrence: None)
  Receive Date: 20060208
  Receipt Date: 20051114
  Transmission Date: 20060701
  Serious: No
  Sender: FDA-Public Use
  Company Number: US-GLAXOSMITHKLINE-A0582149A

PATIENT
  Age: 46 Year
  Sex: Female
  Weight: 77.3 kg

DRUGS (13)
  1. PAXIL [Suspect]
     Indication: DEPENDENT PERSONALITY DISORDER
     Dosage: 60MG PER DAY
     Route: 048
  2. METHADONE [Concomitant]
     Indication: PAIN
     Dosage: 10U THREE TIMES PER DAY
     Route: 048
     Dates: start: 20050929
  3. NORFLEX [Concomitant]
     Dosage: 100U TWICE PER DAY
     Route: 048
     Dates: start: 20051021
  4. BENTYL [Concomitant]
     Indication: IRRITABLE BOWEL SYNDROME
     Dosage: 200U TWICE PER DAY
     Route: 048
  5. PHENERGAN [Concomitant]
     Indication: NAUSEA
     Dosage: 25MG TWICE PER DAY
     Dates: start: 20050830
  6. HYDROXYZINE [Concomitant]
     Indication: ANXIETY
     Dosage: 50MG AS REQUIRED
     Route: 048
     Dates: start: 20051109
  7. AMBIEN [Concomitant]
     Indication: INSOMNIA
     Dosage: 10MG AS REQUIRED
     Route: 048
  8. ATIVAN [Concomitant]
     Indication: ANXIETY
     Dosage: 2MG THREE TIMES PER DAY
     Route: 048
  9. ZENATE [Concomitant]
     Dates: start: 20050929
  10. LISINOPRIL [Concomitant]
     Indication: HYPERTENSION
     Dosage: 20U PER DAY
     Route: 048
  11. ATENOLOL [Concomitant]
     Indication: HYPERTENSION
     Dosage: 25U PER DAY
     Route: 048
  12. PREVACID [Concomitant]
     Route: 048
     Dates: end: 20051103
  13. MIRAPEX [Concomitant]
     Route: 048

REACTIONS (2)
  - MUSCLE SPASMS [None]
  - PAIN [None]
